FAERS Safety Report 4456295-1 (Version None)
Quarter: 2004Q3

REPORT INFORMATION
  Report Type: 
  Country: None (occurrence: None)
  Receive Date: 20040917
  Receipt Date: 20040826
  Transmission Date: 20050211
  Serious: Yes (Other)
  Sender: FDA-Public Use
  Company Number: USA040156630

PATIENT
  Age: 57 Year
  Sex: Female
  Weight: 54 kg

DRUGS (20)
  1. FORTEO [Suspect]
     Indication: OSTEOMALACIA
     Dosage: 20 UG/DAY
     Dates: start: 20031229
  2. DURAGESIC [Concomitant]
  3. MS CONTIN [Concomitant]
  4. ROBAXIN [Concomitant]
  5. PREDNISONE [Concomitant]
  6. PREMARIN [Concomitant]
  7. PAXIL [Concomitant]
  8. ZANTAC [Concomitant]
  9. CELEBREX [Concomitant]
  10. SPIRONOLACTONE [Concomitant]
  11. LASIX [Concomitant]
  12. POTASSIUM [Concomitant]
  13. XANAX [Concomitant]
  14. CALCIUM AND VITAMIN D [Concomitant]
  15. RITALIN [Concomitant]
  16. VERAPAMIL [Concomitant]
  17. ATIVAN [Concomitant]
  18. THYROXINAL LEVOTHYROXINE SODIUM) [Concomitant]
  19. DILAUDID [Concomitant]
  20. VALIUM [Concomitant]

REACTIONS (6)
  - DRUG INEFFECTIVE [None]
  - HEADACHE [None]
  - ILIUM FRACTURE [None]
  - INJECTION SITE RASH [None]
  - PHARMACEUTICAL PRODUCT COMPLAINT [None]
  - SCOLIOSIS [None]
